FAERS Safety Report 7912076-5 (Version None)
Quarter: 2011Q4

REPORT INFORMATION
  Report Type: 
  Country: None (occurrence: None)
  Receive Date: 20111114
  Receipt Date: 20111107
  Transmission Date: 20120403
  Serious: Yes (Death, Other)
  Sender: FDA-Public Use
  Company Number: IL-SANOFI-AVENTIS-2011SA073455

PATIENT
  Age: 43 Year
  Sex: Female

DRUGS (17)
  1. IRINOTECAN HCL [Suspect]
     Route: 065
  2. BEVACIZUMAB [Suspect]
     Route: 065
  3. TAMOXIFEN CITRATE [Concomitant]
  4. CAPECITABINE [Suspect]
     Route: 065
  5. ANASTRAZOLE [Concomitant]
  6. DOXORUBICIN HCL [Suspect]
     Route: 065
  7. CARBOPLATIN [Suspect]
     Route: 065
  8. MITOMYCIN [Suspect]
     Route: 065
  9. CYCLOPHOSPHAMIDE [Suspect]
     Route: 065
  10. GEMCITABINE HYDROCHLORIDE [Suspect]
     Route: 065
  11. VINORELBINE TARTRATE [Suspect]
     Route: 065
  12. PACLITAXEL [Suspect]
     Route: 065
  13. FULVESTRANT [Concomitant]
  14. FUROSEMIDE [Concomitant]
  15. EXEMESTANE [Concomitant]
  16. DOCETAXEL [Suspect]
     Route: 065
  17. MEGESTROL ACETATE [Concomitant]

REACTIONS (9)
  - HEPATIC FAILURE [None]
  - PORTAL HYPERTENSION [None]
  - ASCITES [None]
  - ALANINE AMINOTRANSFERASE INCREASED [None]
  - BLOOD ALKALINE PHOSPHATASE INCREASED [None]
  - HEPATIC CIRRHOSIS [None]
  - ASPARTATE AMINOTRANSFERASE INCREASED [None]
  - BLOOD BILIRUBIN INCREASED [None]
  - GAMMA-GLUTAMYLTRANSFERASE INCREASED [None]
